FAERS Safety Report 7904138-3 (Version None)
Quarter: 2011Q4

REPORT INFORMATION
  Report Type: 
  Country: None (occurrence: None)
  Receive Date: 20111109
  Receipt Date: 20111107
  Transmission Date: 20120403
  Serious: Yes (Other)
  Sender: FDA-Public Use
  Company Number: US-PFIZER INC-2011273114

PATIENT
  Sex: Female
  Weight: 89.796 kg

DRUGS (7)
  1. NEURONTIN [Concomitant]
     Dosage: UNK
  2. SYNTHROID [Concomitant]
     Dosage: UNK
  3. CHANTIX [Suspect]
     Dosage: 1 MG, 2X/DAY
     Dates: start: 20110101
  4. CHANTIX [Suspect]
     Indication: SMOKING CESSATION THERAPY
     Dosage: 0.5 MG, DAILY
     Dates: start: 20110101, end: 20110101
  5. VALIUM [Concomitant]
     Dosage: UNK
  6. FLEXERIL [Concomitant]
     Indication: MUSCLE SPASMS
     Dosage: UNK
  7. METFORMIN [Concomitant]
     Indication: DIABETES MELLITUS
     Dosage: UNK

REACTIONS (3)
  - AGITATION [None]
  - BLOOD PRESSURE INCREASED [None]
  - DEPRESSION [None]
